FAERS Safety Report 9454183 (Version 2)
Quarter: 2013Q3

REPORT INFORMATION
  Report Type: Spontaneous
  Country: US (occurrence: US)
  Receive Date: 20130812
  Receipt Date: 20130827
  Transmission Date: 20140515
  Serious: Yes (Death, Hospitalization)
  Sender: FDA-Public Use
  Company Number: US-ACTELION-A-US2013-86755

PATIENT
  Age: 63 Year
  Sex: Female
  Weight: 84.9 kg

DRUGS (28)
  1. TRACLEER [Suspect]
     Indication: PULMONARY HYPERTENSION
     Dosage: 125 MG, BID
     Route: 048
     Dates: end: 20130731
  2. SILDENAFIL [Concomitant]
     Dosage: 20 MG, TID
  3. TORSEMIDE [Concomitant]
     Dosage: 20 MG, BID
  4. AMLODIPINE [Concomitant]
     Dosage: 5 MG, UNK
  5. AZITHROMYCIN [Concomitant]
     Dosage: 500 MG, UNK
  6. CLONIDINE [Concomitant]
     Dosage: 0.5 MG, UNK
  7. FERROUS SULFATE [Concomitant]
     Dosage: 3 UNK, WEEKLY
  8. FUROSEMIDE [Concomitant]
     Dosage: 1 UNK, QOD
  9. GENTAMYCIN [Concomitant]
     Dosage: 1 UNK, BOTH EYES
  10. HYDRALAZINE [Concomitant]
     Dosage: 50 MG, UNK
  11. HYDROCODONE BITARTRATE AND ACETAMINOPHEN [Concomitant]
     Dosage: 5/500 MG, UNK
  12. ISOSORBIDE MONONITRATE [Concomitant]
     Dosage: 30 UNK, UNK
  13. LISINOPRIL [Concomitant]
     Dosage: 20 MG, UNK
  14. LISINOPRIL AND HYDROCHLOROTHIAZIDE [Concomitant]
     Dosage: 20/12.5 MG, BID
  15. METOPROLOL [Concomitant]
     Dosage: 50 MG, BID
  16. RANOLAZINE [Concomitant]
     Dosage: 1000 MG, BID
  17. SIMVASTATIN [Concomitant]
     Dosage: 20 MG, UNK
  18. VITAMIN D3 [Concomitant]
     Dosage: 1000 UNK, UNK
  19. ACETAMINOPHEN [Concomitant]
     Dosage: 650 MG, Q6HRS PRN
  20. ASPIRIN [Concomitant]
     Dosage: 1 UNK, UNK
  21. DIAZEPAM [Concomitant]
     Dosage: 10 MG, MONTHLY
  22. DOCUSATE [Concomitant]
     Dosage: 100 MG, UNK
  23. FEXOFENADINE [Concomitant]
     Dosage: UNK, BID
  24. HEPARIN [Concomitant]
     Dosage: 5000 U/ML, Q8HRS
  25. ONDANSETRON [Concomitant]
     Dosage: 4 MG, Q8HRS
  26. POLYETHYLENE GLYCOL [Concomitant]
     Dosage: 17 UNK, UNK
  27. POTASSIUM CHLORIDE [Concomitant]
     Dosage: 40 MEQ, UNK
  28. RANIBIZUMAB [Concomitant]
     Dosage: 0.5 MG, UNK

REACTIONS (10)
  - Acute respiratory failure [Fatal]
  - Pulmonary hypertension [Fatal]
  - Dyspnoea [Fatal]
  - Dyspnoea paroxysmal nocturnal [Fatal]
  - Orthopnoea [Fatal]
  - Asthenia [Fatal]
  - Malaise [Fatal]
  - Fluid overload [Fatal]
  - Tachycardia [Fatal]
  - Hypotension [Unknown]
